FAERS Safety Report 9204170 (Version 1)
Quarter: 2013Q2

REPORT INFORMATION
  Report Type: Spontaneous
  Country: FR (occurrence: FR)
  Receive Date: 20130402
  Receipt Date: 20130402
  Transmission Date: 20140414
  Serious: Yes (Hospitalization)
  Sender: FDA-Public Use
  Company Number: FR-JNJFOC-20130317641

PATIENT
  Age: 54 Year
  Sex: Female

DRUGS (4)
  1. ACTIFED [Suspect]
     Indication: PRODUCT USED FOR UNKNOWN INDICATION
     Route: 048
     Dates: start: 20130104, end: 20130105
  2. ACTIFED [Suspect]
     Indication: PRODUCT USED FOR UNKNOWN INDICATION
     Route: 048
     Dates: start: 20130104, end: 20130105
  3. RAMIPRIL [Concomitant]
     Route: 048
  4. KARDEGIC [Concomitant]
     Route: 048

REACTIONS (1)
  - Vasoconstriction [Unknown]
